FAERS Safety Report 4975637-1 (Version None)
Quarter: 2006Q2

REPORT INFORMATION
  Report Type: 
  Country: None (occurrence: None)
  Receive Date: 20060411
  Receipt Date: 20060406
  Transmission Date: 20061013
  Serious: Yes (Other)
  Sender: FDA-Public Use
  Company Number: 200610882BWH

PATIENT
  Age: 52 Year
  Sex: Male

DRUGS (11)
  1. NEXAVAR [Suspect]
     Indication: RENAL CELL CARCINOMA STAGE UNSPECIFIED
     Dosage: 400 MG, BID, ORAL
     Route: 048
     Dates: start: 20060127
  2. LEXAPRO [Concomitant]
  3. LOPID [Concomitant]
  4. TRICOR [Concomitant]
  5. PREVACID [Concomitant]
  6. EFFEXOR [Concomitant]
  7. LIPITOR [Concomitant]
  8. ALLOPURINOL [Concomitant]
  9. COLCHICINE [Concomitant]
  10. GLUCOPHAGE [Concomitant]
  11. AMARYL [Concomitant]

REACTIONS (5)
  - BLOOD GLUCOSE INCREASED [None]
  - DRY SKIN [None]
  - HEART RATE INCREASED [None]
  - HYPERTENSION [None]
  - RASH [None]
